FAERS Safety Report 8543396-1 (Version None)
Quarter: 2012Q3

REPORT INFORMATION
  Report Type: 
  Country: None (occurrence: None)
  Receive Date: 20120727
  Receipt Date: 20120716
  Transmission Date: 20120928
  Serious: Yes (Hospitalization)
  Sender: FDA-Public Use
  Company Number: US-BAYER-2012-072393

PATIENT
  Age: 28 Year
  Sex: Female
  Weight: 53.9 kg

DRUGS (15)
  1. HYDROCODONE BITARTRATE + ACETAMINOPHEN [Concomitant]
     Dosage: UNK
     Dates: start: 20120512
  2. VALTREX [Concomitant]
     Dosage: 1 G,DAILY
     Route: 048
     Dates: start: 20120108, end: 20120519
  3. ZOLOFT [Concomitant]
     Dosage: 50 MG, DAILY
     Route: 048
     Dates: start: 20120306, end: 20120518
  4. PREDNISONE [Concomitant]
     Dosage: UNK
     Dates: start: 20120206
  5. FLONASE [Concomitant]
     Dosage: 1 SPRAY
     Route: 045
     Dates: start: 20120420
  6. PRILOSEC [Concomitant]
     Dosage: 40 MG, DAILY
     Route: 048
     Dates: start: 20120502
  7. CLARITHROMYCIN [Concomitant]
     Dosage: UNK
     Dates: start: 20120512
  8. PRILOSEC [Concomitant]
  9. DROSPIRENONE AND ETHINYL ESTRADIOL [Suspect]
  10. ANTIBIOTICS [Concomitant]
     Indication: PNEUMONIA
  11. YASMIN [Suspect]
  12. AZITHROMYCIN [Concomitant]
     Dosage: UNK
     Dates: start: 20120206
  13. ALPRAZOLAM [Concomitant]
     Dosage: UNK
     Dates: start: 20120420
  14. ZANTAC [Concomitant]
     Dosage: UNK
     Dates: start: 20120502
  15. OXYCODONE HCL AND ACETAMINOPHEN [Concomitant]
     Dosage: UNK
     Dates: start: 20120519

REACTIONS (2)
  - PULMONARY EMBOLISM [None]
  - PULMONARY INFARCTION [None]
